FAERS Safety Report 25059944 (Version 1)
Quarter: 2025Q1

REPORT INFORMATION
  Report Type: Spontaneous
  Country: US (occurrence: US)
  Receive Date: 20250310
  Receipt Date: 20250310
  Transmission Date: 20250409
  Serious: No
  Sender: GLAUKOS
  Company Number: US-GLK-000614

PATIENT
  Sex: Male

DRUGS (1)
  1. PHOTREXA [Suspect]
     Active Substance: RIBOFLAVIN 5^-PHOSPHATE SODIUM
     Indication: Product used for unknown indication
     Route: 047
     Dates: start: 20250212, end: 20250212

REACTIONS (3)
  - Corneal endothelial disorder [Unknown]
  - Punctate keratitis [Unknown]
  - Corneal opacity [Unknown]

NARRATIVE: CASE EVENT DATE: 20250219
